FAERS Safety Report 7912453-2 (Version None)
Quarter: 2011Q4

REPORT INFORMATION
  Report Type: 
  Country: None (occurrence: None)
  Receive Date: 20111114
  Receipt Date: 20111102
  Transmission Date: 20120403
  Serious: Yes (Other)
  Sender: FDA-Public Use
  Company Number: US-BAYER-2011-045918

PATIENT
  Sex: Female
  Weight: 57.143 kg

DRUGS (5)
  1. DICLOFENAC SODIUM [Concomitant]
     Dosage: UNK UNK, PRN
     Dates: start: 20020101
  2. YASMIN [Suspect]
     Indication: CONTRACEPTION
     Dosage: UNK
     Dates: start: 20051001, end: 20070901
  3. YASMIN [Suspect]
     Indication: PREMENSTRUAL SYNDROME
  4. NAPROXEN [Concomitant]
     Dosage: UNK UNK, PRN
     Dates: start: 20020101
  5. SULINDAC [Concomitant]
     Dosage: UNK UNK, PRN
     Dates: start: 20020101

REACTIONS (9)
  - GENERAL PHYSICAL HEALTH DETERIORATION [None]
  - CHOLECYSTITIS CHRONIC [None]
  - EMOTIONAL DISTRESS [None]
  - INJURY [None]
  - ANXIETY [None]
  - GALLBLADDER INJURY [None]
  - PAIN [None]
  - BILIARY DYSKINESIA [None]
  - CHOLELITHIASIS [None]
